FAERS Safety Report 13893949 (Version 1)
Quarter: 2017Q3

REPORT INFORMATION
  Report Type: Report from Study
  Country: US (occurrence: US)
  Receive Date: 20170822
  Receipt Date: 20170822
  Transmission Date: 20171127
  Serious: Yes (Death, Life-Threatening, Hospitalization)
  Sender: FDA-Public Use
  Company Number: US-ACTELION-A-NJ2017-158105

PATIENT
  Age: 32 Year
  Sex: Female
  Weight: 136.96 kg

DRUGS (3)
  1. VELETRI [Suspect]
     Active Substance: EPOPROSTENOL
     Indication: PULMONARY ARTERIAL HYPERTENSION
     Dosage: 10 NG/KG, PER MIN
     Route: 042
  2. ZOSYN [Concomitant]
     Active Substance: PIPERACILLIN SODIUM\TAZOBACTAM SODIUM
     Dosage: UNK
     Dates: start: 20170808
  3. OPSUMIT [Suspect]
     Active Substance: MACITENTAN
     Indication: PULMONARY ARTERIAL HYPERTENSION
     Dosage: 10 MG, QD
     Route: 048
     Dates: start: 20160912

REACTIONS (19)
  - Haemoptysis [Not Recovered/Not Resolved]
  - Vomiting [Fatal]
  - Hepatomegaly [Fatal]
  - Ascites [Fatal]
  - Pulmonary arterial hypertension [Fatal]
  - Fall [Unknown]
  - Abdominal pain upper [Fatal]
  - Condition aggravated [Fatal]
  - Back pain [Fatal]
  - Cardiac arrest [Not Recovered/Not Resolved]
  - Pulse absent [Not Recovered/Not Resolved]
  - Gallbladder oedema [Fatal]
  - Periportal oedema [Fatal]
  - Cholelithiasis [Fatal]
  - Sarcoidosis [Fatal]
  - Nausea [Fatal]
  - Cholecystitis acute [Fatal]
  - Abdominal pain lower [Fatal]
  - Gallbladder enlargement [Fatal]

NARRATIVE: CASE EVENT DATE: 201707
